FAERS Safety Report 10623370 (Version 1)
Quarter: 2014Q4

REPORT INFORMATION
  Report Type: Spontaneous
  Country: IT (occurrence: IT)
  Receive Date: 20141203
  Receipt Date: 20141203
  Transmission Date: 20150529
  Serious: Yes (Hospitalization)
  Sender: FDA-Public Use
  Company Number: IT-BAYER-2014-177379

PATIENT
  Age: 83 Year
  Sex: Female

DRUGS (1)
  1. CARDIOASPIRIN [Suspect]
     Active Substance: ASPIRIN
     Indication: THROMBOSIS PROPHYLAXIS
     Dosage: 100 MG, DAILY DOSE
     Route: 048
     Dates: start: 20140101, end: 20141003

REACTIONS (4)
  - Epistaxis [Unknown]
  - Vomiting [Unknown]
  - Loss of consciousness [Unknown]
  - Haematemesis [Unknown]

NARRATIVE: CASE EVENT DATE: 20141003
